FAERS Safety Report 14111796 (Version 3)
Quarter: 2025Q4

REPORT INFORMATION
  Report Type: Spontaneous
  Country: US (occurrence: US)
  Receive Date: 20171020
  Receipt Date: 20251107
  Transmission Date: 20260117
  Serious: Yes (Life-Threatening, Hospitalization, Other)
  Sender: PFIZER
  Company Number: US-PFIZER INC-2017453764

PATIENT
  Age: 57 Year
  Sex: Female

DRUGS (11)
  1. GEMCITABINE HYDROCHLORIDE [Suspect]
     Active Substance: GEMCITABINE HYDROCHLORIDE
     Indication: Ovarian cancer
     Dosage: 9 G/M2 , CYCLIC
  2. GEMCITABINE HYDROCHLORIDE [Suspect]
     Active Substance: GEMCITABINE HYDROCHLORIDE
     Dosage: 2000 MG/M2, CYCLIC (EVERY 14 DAYS OF A 28-DAY CYCLE) IN 5/02)
     Dates: start: 200205
  3. GEMCITABINE HYDROCHLORIDE [Suspect]
     Active Substance: GEMCITABINE HYDROCHLORIDE
     Dosage: 1000 MG/M2, CYCLIC (EVERY 14 DAYS OF A 28-DAY CYCLE) IN 5/02)
  4. GEMCITABINE HYDROCHLORIDE [Suspect]
     Active Substance: GEMCITABINE HYDROCHLORIDE
     Dosage: UNK, CYCLIC (SIXTH CYCLE)
  5. GEMCITABINE HYDROCHLORIDE [Suspect]
     Active Substance: GEMCITABINE HYDROCHLORIDE
     Dosage: UNK, CYCLIC (SEVENTH CYCLE)
  6. DOXORUBICIN [Suspect]
     Active Substance: DOXORUBICIN
     Indication: Ovarian cancer
     Dosage: UNK (PEGYLATED LIPOSOMAL DOXORUBICIN)
  7. DOXORUBICIN [Suspect]
     Active Substance: DOXORUBICIN
     Dosage: 20 MG/M2, CYCLIC (EVERY 14 DAYS OF A 28-DAY CYCLE) IN 5/02)
  8. DOXORUBICIN [Suspect]
     Active Substance: DOXORUBICIN
     Dosage: 10 MG/M2, CYCLIC (EVERY 14 DAYS OF A 28-DAY CYCLE) IN 5/02)
  9. DOXORUBICIN [Suspect]
     Active Substance: DOXORUBICIN
     Dosage: 15 MG/M2, CYCLIC ( INCREASED ON CYCLE FOUR)
  10. DOXORUBICIN [Suspect]
     Active Substance: DOXORUBICIN
     Dosage: UNK, CYCLIC (SIXTH CYCLE)
  11. DOXORUBICIN [Suspect]
     Active Substance: DOXORUBICIN
     Dosage: UNK, CYCLIC (SEVENTH CYCLE)

REACTIONS (7)
  - Haemolytic uraemic syndrome [Unknown]
  - Dyspnoea [Recovered/Resolved]
  - Hypertension [Recovered/Resolved]
  - Oedema peripheral [Recovered/Resolved]
  - Mucosal inflammation [Recovered/Resolved]
  - Non-cardiogenic pulmonary oedema [Recovered/Resolved]
  - Thrombotic microangiopathy [Unknown]
